FAERS Safety Report 11652068 (Version 1)
Quarter: 2015Q4

REPORT INFORMATION
  Report Type: Spontaneous
  Country: US (occurrence: US)
  Receive Date: 20151022
  Receipt Date: 20151022
  Transmission Date: 20160304
  Serious: Yes (Other)
  Sender: FDA-Public Use
  Company Number: US-PFIZER INC-2015350149

PATIENT
  Age: 44 Year
  Sex: Female
  Weight: 42 kg

DRUGS (2)
  1. LATANOPROST. [Suspect]
     Active Substance: LATANOPROST
     Dosage: 1 GTT, DAILY; (NOT USE IN RIGHT EYE)
     Route: 047
     Dates: start: 2015
  2. LATANOPROST. [Suspect]
     Active Substance: LATANOPROST
     Indication: GLAUCOMA
     Dosage: 2 GTT, DAILY, (1 DROP IN EACH EYE IN EVENING)
     Route: 047

REACTIONS (5)
  - Intraocular pressure increased [Not Recovered/Not Resolved]
  - Eyelid oedema [Recovering/Resolving]
  - Intentional product misuse [Unknown]
  - Incorrect product storage [Unknown]
  - Eye swelling [Recovering/Resolving]

NARRATIVE: CASE EVENT DATE: 2015
